FAERS Safety Report 24462803 (Version 1)
Quarter: 2024Q4

REPORT INFORMATION
  Report Type: Spontaneous
  Country: CA (occurrence: CA)
  Receive Date: 20241018
  Receipt Date: 20241018
  Transmission Date: 20250114
  Serious: Yes (Other)
  Sender: ROCHE
  Company Number: CA-ROCHE-10000108551

PATIENT
  Age: 62 Year
  Sex: Female

DRUGS (8)
  1. RITUXIMAB [Suspect]
     Active Substance: RITUXIMAB
     Indication: Product used for unknown indication
     Route: 042
  2. RISEDRONATE SODIUM [Concomitant]
     Active Substance: RISEDRONATE SODIUM
  3. PLAQUENIL [Concomitant]
     Active Substance: HYDROXYCHLOROQUINE SULFATE
  4. METHOTREXATE [Concomitant]
     Active Substance: METHOTREXATE
     Dosage: DOSAGE FORM NOT SPECIFIED
  5. ARAVA [Concomitant]
     Active Substance: LEFLUNOMIDE
     Dosage: DOSAGE FORM NOT SPECIFIED
  6. ANASTROZOLE [Concomitant]
     Active Substance: ANASTROZOLE
     Dosage: DOSAGE FORM NOT SPECIFIED
  7. AMLODIPINE [Concomitant]
     Active Substance: AMLODIPINE BESYLATE
     Dosage: DOSAGE FORM NOT SPECIFIED
  8. FOLIC ACID [Concomitant]
     Active Substance: FOLIC ACID
     Dosage: DOSAGE FORM NOT SPECIFIED

REACTIONS (1)
  - Breast cancer [Recovering/Resolving]
